FAERS Safety Report 20965767 (Version 1)
Quarter: 2022Q2

REPORT INFORMATION
  Report Type: Other
  Country: AE (occurrence: None)
  Receive Date: 20220616
  Receipt Date: 20220616
  Transmission Date: 20220721
  Serious: Yes (Other)
  Sender: FDA-Public Use
  Company Number: AE-ROCHE-3114435

PATIENT
  Sex: Female

DRUGS (2)
  1. HERCEPTIN [Suspect]
     Active Substance: TRASTUZUMAB
     Indication: Breast cancer metastatic
     Route: 065
  2. PERJETA [Suspect]
     Active Substance: PERTUZUMAB
     Indication: Breast cancer metastatic
     Route: 065

REACTIONS (10)
  - Procedural haemorrhage [Unknown]
  - Liver disorder [Unknown]
  - Umbilical hernia [Unknown]
  - Spondylolisthesis [Unknown]
  - Breast calcifications [Unknown]
  - Cyst [Unknown]
  - Invasive ductal breast carcinoma [Unknown]
  - Osteopenia [Unknown]
  - Thyroid mass [Unknown]
  - Breast cancer metastatic [Unknown]
